FAERS Safety Report 25000602 (Version 1)
Quarter: 2025Q1

REPORT INFORMATION
  Report Type: Spontaneous
  Country: US (occurrence: US)
  Receive Date: 20250222
  Receipt Date: 20250222
  Transmission Date: 20250408
  Serious: No
  Sender: SANOFI AVENTIS
  Company Number: US-SA-2025SA051924

PATIENT
  Sex: Female
  Weight: 50.91 kg

DRUGS (30)
  1. DUPIXENT [Suspect]
     Active Substance: DUPILUMAB
     Dosage: 300 MG, QOW
     Route: 058
  2. VITAMINS [Concomitant]
     Active Substance: VITAMINS
  3. MINERALS\VITAMINS [Concomitant]
     Active Substance: MINERALS\VITAMINS
  4. HERBALS\TURMERIC [Concomitant]
     Active Substance: HERBALS\TURMERIC
  5. MUPIROCIN [Concomitant]
     Active Substance: MUPIROCIN
  6. CEPHALEXIN [Concomitant]
     Active Substance: CEPHALEXIN
  7. PREDNISONE [Concomitant]
     Active Substance: PREDNISONE
  8. METHOCARBAMOL [Concomitant]
     Active Substance: METHOCARBAMOL
  9. OLMESARTAN MEDOXOMIL [Concomitant]
     Active Substance: OLMESARTAN MEDOXOMIL
  10. GABAPENTIN [Concomitant]
     Active Substance: GABAPENTIN
  11. CLONIDINE HYDROCHLORIDE [Concomitant]
     Active Substance: CLONIDINE HYDROCHLORIDE
  12. ONDANSETRON [Concomitant]
     Active Substance: ONDANSETRON
  13. FENTANYL [Concomitant]
     Active Substance: FENTANYL
  14. SULFAMETHOXAZOLE AND TRIMETHOPRIM [Concomitant]
     Active Substance: SULFAMETHOXAZOLE\TRIMETHOPRIM
  15. FOLIC ACID [Concomitant]
     Active Substance: FOLIC ACID
  16. ZOLPIDEM TARTRATE [Concomitant]
     Active Substance: ZOLPIDEM TARTRATE
  17. SERTRALINE HYDROCHLORIDE [Concomitant]
     Active Substance: SERTRALINE HYDROCHLORIDE
  18. TRIAMCINOLONE ACETONIDE [Concomitant]
     Active Substance: TRIAMCINOLONE ACETONIDE
  19. IVERMECTIN [Concomitant]
     Active Substance: IVERMECTIN
  20. SPRAVATO [Concomitant]
     Active Substance: ESKETAMINE
  21. AMOXICILLIN\CLAVULANIC ACID [Concomitant]
     Active Substance: AMOXICILLIN\CLAVULANIC ACID
  22. LORAZEPAM [Concomitant]
     Active Substance: LORAZEPAM
  23. MOXIFLOXACIN [Concomitant]
     Active Substance: MOXIFLOXACIN
  24. CEFDINIR [Concomitant]
     Active Substance: CEFDINIR
  25. FERROUS SULFATE [Concomitant]
     Active Substance: FERROUS SULFATE
  26. VALACYCLOVIR [Concomitant]
     Active Substance: VALACYCLOVIR HYDROCHLORIDE
  27. HYDROCORTISONE [Concomitant]
     Active Substance: HYDROCORTISONE
  28. EURAX [Concomitant]
     Active Substance: CROTAMITON
  29. NYSTATIN AND TRIAMCINOLONE [Concomitant]
     Active Substance: NYSTATIN\TRIAMCINOLONE ACETONIDE
  30. ACETAMINOPHEN\HYDROCODONE [Concomitant]
     Active Substance: ACETAMINOPHEN\HYDROCODONE

REACTIONS (2)
  - Erythema [Unknown]
  - Injection site pain [Unknown]
